FAERS Safety Report 6999926-4 (Version None)
Quarter: 2010Q3

REPORT INFORMATION
  Report Type: 
  Country: None (occurrence: None)
  Receive Date: 20100920
  Receipt Date: 20100330
  Transmission Date: 20110219
  Serious: Yes (Hospitalization)
  Sender: FDA-Public Use
  Company Number: US-ASTRAZENECA-2010SE14099

PATIENT
  Age: 4 Year
  Sex: Male
  Weight: 23 kg

DRUGS (3)
  1. QUETIAPINE [Suspect]
     Indication: OPPOSITIONAL DEFIANT DISORDER
     Route: 048
  2. QUETIAPINE [Suspect]
     Route: 048
  3. CLONIDINE HYDROCHLORIDE [Concomitant]
     Route: 048

REACTIONS (1)
  - NEUROLEPTIC MALIGNANT SYNDROME [None]
